FAERS Safety Report 4890384-2 (Version None)
Quarter: 2005Q4

REPORT INFORMATION
  Report Type: 
  Country: None (occurrence: None)
  Receive Date: 20051220
  Receipt Date: 20051115
  Transmission Date: 20060501
  Serious: Yes (Other)
  Sender: FDA-Public Use
  Company Number: 425160

PATIENT
  Sex: Female

DRUGS (1)
  1. BONIVA [Suspect]
     Indication: DRUG USE FOR UNKNOWN INDICATION

REACTIONS (5)
  - DIARRHOEA [None]
  - DYSPEPSIA [None]
  - MUSCLE SPASMS [None]
  - NAUSEA [None]
  - PAINFUL DEFAECATION [None]
